FAERS Safety Report 11743584 (Version 1)
Quarter: 2015Q4

REPORT INFORMATION
  Report Type: Spontaneous
  Country: IT (occurrence: IT)
  Receive Date: 20151116
  Receipt Date: 20151116
  Transmission Date: 20160304
  Serious: Yes (Hospitalization)
  Sender: FDA-Public Use
  Company Number: IT-GLAXOSMITHKLINE-IT2015GSK163143

PATIENT
  Age: 32 Year
  Sex: Female

DRUGS (3)
  1. RIVOTRIL [Suspect]
     Active Substance: CLONAZEPAM
     Indication: INTENTIONAL SELF-INJURY
     Dosage: 6 UNK, SINGLE
     Route: 048
     Dates: start: 20150818, end: 20150818
  2. MIRTAZAPINA [Concomitant]
     Active Substance: MIRTAZAPINE
     Indication: DEPRESSION
  3. LAMICTAL [Suspect]
     Active Substance: LAMOTRIGINE
     Indication: INTENTIONAL SELF-INJURY
     Dosage: 4 DF, SINGLE
     Route: 048
     Dates: start: 20150818, end: 20150818

REACTIONS (2)
  - Drug abuse [Recovering/Resolving]
  - Bradyphrenia [Recovering/Resolving]

NARRATIVE: CASE EVENT DATE: 20150818
